FAERS Safety Report 4626021-1 (Version None)
Quarter: 2005Q2

REPORT INFORMATION
  Report Type: 
  Country: None (occurrence: None)
  Receive Date: 20050404
  Receipt Date: 20050321
  Transmission Date: 20051028
  Serious: Yes (Other)
  Sender: FDA-Public Use
  Company Number: DE-JNJFOC-20050304373

PATIENT
  Sex: Male

DRUGS (2)
  1. FENTANYL [Suspect]
     Indication: PAIN
     Route: 042
  2. MIDAZOLAM HCL [Interacting]
     Indication: PAIN
     Route: 042

REACTIONS (4)
  - COMA [None]
  - DRUG EFFECT INCREASED [None]
  - DRUG INTERACTION [None]
  - SOMNOLENCE [None]
